FAERS Safety Report 12865043 (Version 1)
Quarter: 2016Q4

REPORT INFORMATION
  Report Type: Spontaneous
  Country: US (occurrence: US)
  Receive Date: 20161019
  Receipt Date: 20161019
  Transmission Date: 20170207
  Serious: Yes (Other)
  Sender: FDA-Public Use
  Company Number: None

PATIENT
  Age: 28 Year
  Sex: Female

DRUGS (4)
  1. VORICONAZOLE. [Suspect]
     Active Substance: VORICONAZOLE
     Indication: SCEDOSPORIUM INFECTION
     Dates: start: 20140101, end: 20161019
  2. TERBINAFINE. [Concomitant]
     Active Substance: TERBINAFINE
  3. MICAFUNGIN [Concomitant]
     Active Substance: MICAFUNGIN
  4. AMPHOTERICIN B LIPOSOME [Concomitant]
     Active Substance: AMPHOTERICIN B

REACTIONS (1)
  - Squamous cell carcinoma [None]

NARRATIVE: CASE EVENT DATE: 20160920
